APPROVED DRUG PRODUCT: TAMSULOSIN HYDROCHLORIDE
Active Ingredient: TAMSULOSIN HYDROCHLORIDE
Strength: 0.4MG
Dosage Form/Route: CAPSULE;ORAL
Application: A090408 | Product #001
Applicant: PHARMOBEDIENT CONSULTING LLC
Approved: Apr 27, 2010 | RLD: No | RS: No | Type: DISCN